FAERS Safety Report 5068346-4 (Version None)
Quarter: 2006Q3

REPORT INFORMATION
  Report Type: 
  Country: None (occurrence: None)
  Receive Date: 20060802
  Receipt Date: 20050811
  Transmission Date: 20061208
  Serious: No
  Sender: FDA-Public Use
  Company Number: US-BRISTOL-MYERS SQUIBB COMPANY-13072673

PATIENT
  Age: 67 Year
  Sex: Female
  Weight: 82 kg

DRUGS (10)
  1. COUMADIN [Suspect]
     Indication: ATRIAL FIBRILLATION
     Dosage: 5 MG 4 DAYS/WEEK + 2.5 MG 3 DAYS/WEEK
     Dates: start: 20050104, end: 20050810
  2. BETAPACE [Concomitant]
  3. MAG-OX [Concomitant]
  4. LOTREL [Concomitant]
  5. HYDROCHLOROTHIAZIDE [Concomitant]
  6. BENICAR [Concomitant]
  7. CALCIUM GLUCONATE [Concomitant]
  8. ACETAMINOPHEN [Concomitant]
  9. MIACALCIN [Concomitant]
  10. PROTONIX [Concomitant]

REACTIONS (3)
  - ALOPECIA [None]
  - PRURITUS [None]
  - RASH [None]
